FAERS Safety Report 5801894-5 (Version None)
Quarter: 2008Q3

REPORT INFORMATION
  Report Type: 
  Country: None (occurrence: None)
  Receive Date: 20080707
  Receipt Date: 20080702
  Transmission Date: 20090109
  Serious: Yes (Hospitalization)
  Sender: FDA-Public Use
  Company Number: FR-WYE-G01803408

PATIENT
  Sex: Female

DRUGS (5)
  1. TAZOCILLINE [Suspect]
     Indication: SEPSIS
     Route: 042
     Dates: start: 20060721, end: 20060729
  2. VANCOMYCIN [Concomitant]
     Indication: SEPSIS
     Dosage: 2 G
     Route: 042
     Dates: start: 20070721, end: 20070729
  3. CERUBIDINE [Concomitant]
     Indication: ACUTE MYELOID LEUKAEMIA
     Dosage: 103.2 MG
     Route: 042
     Dates: start: 20060721, end: 20060723
  4. VFEND [Suspect]
     Indication: ANTIFUNGAL PROPHYLAXIS
     Dosage: UNKNOWN
     Route: 042
     Dates: start: 20060721, end: 20060727
  5. ARACYTINE [Concomitant]
     Indication: ACUTE MYELOID LEUKAEMIA
     Dosage: 345 MG
     Route: 042
     Dates: start: 20060721, end: 20060727

REACTIONS (3)
  - BLOOD BILIRUBIN INCREASED [None]
  - CYTOLYTIC HEPATITIS [None]
  - GAMMA-GLUTAMYLTRANSFERASE INCREASED [None]
